FAERS Safety Report 11889743 (Version 3)
Quarter: 2016Q4

REPORT INFORMATION
  Report Type: Report from Study
  Country: US (occurrence: US)
  Receive Date: 20160105
  Receipt Date: 20161226
  Transmission Date: 20170206
  Serious: Yes (Hospitalization)
  Sender: FDA-Public Use
  Company Number: US-UCBSA-2015042677

PATIENT
  Age: 57 Year
  Sex: Female
  Weight: 73 kg

DRUGS (13)
  1. ARICEPT [Concomitant]
     Active Substance: DONEPEZIL HYDROCHLORIDE
     Indication: DEEP BRAIN STIMULATION
     Dosage: 10 MG, ONCE DAILY (QD)
     Route: 048
  2. ATIVAN [Concomitant]
     Active Substance: LORAZEPAM
     Indication: PRODUCT USED FOR UNKNOWN INDICATION
     Dosage: UNK
  3. METOPROLOL. [Concomitant]
     Active Substance: METOPROLOL
     Indication: BLOOD PRESSURE MEASUREMENT
     Dosage: 25 MG, 2X/DAY (BID)
     Route: 048
  4. PROVENTIL [Concomitant]
     Active Substance: ALBUTEROL
     Indication: ASTHMA
     Dosage: UNK
  5. LEVETIRACETAM. [Suspect]
     Active Substance: LEVETIRACETAM
     Indication: PARTIAL SEIZURES
     Dosage: 500 MG TWICE DAILY ALONG WITH 750 MG TWICE DAILY, 2X/DAY (BID)
     Dates: start: 2015
  6. REQUIP [Concomitant]
     Active Substance: ROPINIROLE HYDROCHLORIDE
     Indication: RESTLESS LEGS SYNDROME
     Dosage: 2 MG, 2X/DAY (BID)
     Route: 048
  7. LEVETIRACETAM. [Suspect]
     Active Substance: LEVETIRACETAM
     Indication: SEIZURE
     Dosage: 500 MG 4 TABS DAILY
  8. KEPPRA [Suspect]
     Active Substance: LEVETIRACETAM
     Dosage: (1000 MG TWICE A DAY AND ADDED 500 MG IN AFTERNOON) DOSE INCREASED
     Route: 048
     Dates: start: 201511
  9. TOPAMAX [Concomitant]
     Active Substance: TOPIRAMATE
     Indication: SEIZURE
     Dosage: 75 MG, 2X/DAY (BID)
     Route: 048
  10. MODAFINIL. [Concomitant]
     Active Substance: MODAFINIL
     Indication: DEEP BRAIN STIMULATION
     Dosage: 100 MG, ONCE DAILY (QD)
     Route: 048
  11. LEVETIRACETAM. [Suspect]
     Active Substance: LEVETIRACETAM
     Dosage: 500 MG TABLETS 2 DURING DAY, 1 AT NOON AND 2 AT NIGHT, 3X/DAY (TID)
  12. KEPPRA [Suspect]
     Active Substance: LEVETIRACETAM
     Indication: SEIZURE
     Dosage: 1000 MG, 2X/DAY (BID)
     Route: 048
  13. CYMBALTA [Concomitant]
     Active Substance: DULOXETINE HYDROCHLORIDE
     Indication: PAIN
     Dosage: 60 MG, ONCE DAILY (QD)
     Route: 048

REACTIONS (4)
  - Migraine [Not Recovered/Not Resolved]
  - Off label use [Unknown]
  - Seizure [Recovered/Resolved with Sequelae]
  - Pneumonia [Recovered/Resolved]

NARRATIVE: CASE EVENT DATE: 2015
